FAERS Safety Report 11269864 (Version 1)
Quarter: 2015Q3

REPORT INFORMATION
  Report Type: Spontaneous
  Country: US (occurrence: None)
  Receive Date: 20150713
  Receipt Date: 20150713
  Transmission Date: 20151125
  Serious: No
  Sender: FDA-Public Use
  Company Number: None

PATIENT
  Age: 75 Year
  Sex: Female
  Weight: 63.5 kg

DRUGS (5)
  1. BENICA/CT [Concomitant]
  2. VITAMIN D [Concomitant]
     Active Substance: CHOLECALCIFEROL
  3. LOPRESSOR [Concomitant]
     Active Substance: METOPROLOL TARTRATE
  4. SYNTHROID [Concomitant]
     Active Substance: LEVOTHYROXINE SODIUM
  5. EXEMESTANE 25 MG GREENSTONE [Suspect]
     Active Substance: EXEMESTANE
     Indication: BREAST CANCER METASTATIC
     Route: 048
     Dates: start: 20150615, end: 20150710

REACTIONS (7)
  - Abdominal pain [None]
  - Diarrhoea [None]
  - Blood alkaline phosphatase increased [None]
  - Abnormal faeces [None]
  - Alanine aminotransferase increased [None]
  - Abdominal distension [None]
  - Aspartate aminotransferase increased [None]

NARRATIVE: CASE EVENT DATE: 20150710
